FAERS Safety Report 21988735 (Version 3)
Quarter: 2025Q4

REPORT INFORMATION
  Report Type: Report from Study
  Country: CA (occurrence: CA)
  Receive Date: 20230214
  Receipt Date: 20251231
  Transmission Date: 20260118
  Serious: Yes (Hospitalization, Other)
  Sender: NOVARTIS
  Company Number: CA-002147023-NVSC2022CA281616

PATIENT
  Age: 66 Year
  Sex: Female
  Weight: 81.6 kg

DRUGS (6)
  1. COSENTYX [Suspect]
     Active Substance: SECUKINUMAB
     Indication: Psoriasis
     Dosage: 300 MG, QMO (EVERY 4 WEEKS)
     Route: 058
     Dates: start: 20201015, end: 20210616
  2. COSENTYX [Suspect]
     Active Substance: SECUKINUMAB
     Dosage: 450 MG/KG, Q4W
     Route: 065
     Dates: start: 20201015
  3. COSENTYX [Suspect]
     Active Substance: SECUKINUMAB
     Dosage: 450 MG, QMO (EVERY 4 WEEKS)
     Route: 058
     Dates: start: 20210616
  4. LYRICA [Concomitant]
     Active Substance: PREGABALIN
     Indication: Pain
     Dosage: 50 MG, TID
     Route: 065
     Dates: start: 20160101
  5. MAVIK [Concomitant]
     Active Substance: TRANDOLAPRIL
     Indication: Hypertension
     Dosage: 1 MG, QD
     Route: 065
     Dates: start: 20160101
  6. ASPIRIN [Concomitant]
     Active Substance: ASPIRIN
     Indication: Product used for unknown indication
     Dosage: UNK (UNSPECIFIED)
     Route: 065

REACTIONS (11)
  - Cholecystitis chronic [Recovered/Resolved]
  - Cholelithiasis [Recovered/Resolved]
  - Hepatic cirrhosis [Recovered/Resolved]
  - Barrett^s oesophagus [Unknown]
  - Bile duct stone [Unknown]
  - Oropharyngeal discomfort [Unknown]
  - Large intestine polyp [Unknown]
  - Gastritis [Unknown]
  - Hepatic enzyme increased [Unknown]
  - Helicobacter infection [Unknown]
  - Hepatic mass [Unknown]

NARRATIVE: CASE EVENT DATE: 20220208
